FAERS Safety Report 13910589 (Version 3)
Quarter: 2017Q4

REPORT INFORMATION
  Report Type: Spontaneous
  Country: DE (occurrence: TH)
  Receive Date: 20170828
  Receipt Date: 20171027
  Transmission Date: 20180320
  Serious: Yes (Other)
  Sender: FDA-Public Use
  Company Number: DE-TEVA-795467GER

PATIENT
  Age: 71 Year
  Sex: Female

DRUGS (4)
  1. L-THYROXIN JOD 100/100 1A PHARMA [Concomitant]
     Dosage: 1 DOSAGE FORMS DAILY; LONG-TERM MEDICATION, FOR MORE THAN 20 YEARS; AFTER THYROIDECTOMY
     Route: 048
  2. FEMOSTON CONTI 1MG/5MG [Concomitant]
     Indication: HORMONE REPLACEMENT THERAPY
     Dosage: LONG-TERM MEDICATION
     Route: 048
  3. DICLOFENAC [Suspect]
     Active Substance: DICLOFENAC
     Route: 065
     Dates: start: 20170717, end: 20170717
  4. DICLOFENAC [Suspect]
     Active Substance: DICLOFENAC
     Indication: PAIN
     Dosage: 150 MILLIGRAM DAILY;
     Route: 048
     Dates: start: 20170718, end: 20170719

REACTIONS (6)
  - Peripheral swelling [Recovered/Resolved]
  - Pruritus [Recovered/Resolved]
  - Urticaria [Not Recovered/Not Resolved]
  - Blister [Recovered/Resolved]
  - Deformity [Recovered/Resolved]
  - Blood pressure increased [Recovered/Resolved]

NARRATIVE: CASE EVENT DATE: 20170719
